FAERS Safety Report 22014329 (Version 1)
Quarter: 2023Q1

REPORT INFORMATION
  Report Type: Spontaneous
  Country: US (occurrence: US)
  Receive Date: 20230221
  Receipt Date: 20230221
  Transmission Date: 20230417
  Serious: Yes (Hospitalization, Other)
  Sender: FDA-Public Use
  Company Number: US-CHEPLA-2023002200

PATIENT
  Age: 64 Year
  Sex: Male

DRUGS (3)
  1. HYDROXYUREA [Suspect]
     Active Substance: HYDROXYUREA
     Indication: Acute myeloid leukaemia
  2. RASBURICASE [Suspect]
     Active Substance: RASBURICASE
     Indication: Acute myeloid leukaemia
  3. ALLOPURINOL [Suspect]
     Active Substance: ALLOPURINOL
     Indication: Acute myeloid leukaemia

REACTIONS (4)
  - Appendicitis [Recovered/Resolved]
  - Septic shock [Unknown]
  - Multiple organ dysfunction syndrome [Unknown]
  - Product use in unapproved indication [Recovered/Resolved]
